FAERS Safety Report 5684574-9 (Version None)
Quarter: 2008Q1

REPORT INFORMATION
  Report Type: 
  Country: None (occurrence: None)
  Receive Date: 20080328
  Receipt Date: 20070508
  Transmission Date: 20080703
  Serious: No
  Sender: FDA-Public Use
  Company Number: US-BRISTOL-MYERS SQUIBB COMPANY-13703491

PATIENT
  Age: 76 Year
  Sex: Male
  Weight: 83 kg

DRUGS (17)
  1. ERBITUX [Suspect]
     Indication: NEOPLASM MALIGNANT
     Dosage: ALSO RECEIVED 3 VIALS OF LOT 06C00688B EXP: 12/2009 AND 1 VIAL LOT # 06C00607 EXP: 11/09
     Route: 042
     Dates: start: 20070227, end: 20070227
  2. BENADRYL [Concomitant]
     Route: 042
  3. ZOFRAN [Concomitant]
     Route: 042
  4. ASCORBIC ACID [Concomitant]
  5. NEXIUM [Concomitant]
  6. LEVAQUIN [Concomitant]
  7. LORTAB [Concomitant]
  8. FLOMAX [Concomitant]
  9. LIPITOR [Concomitant]
  10. LEVITRA [Concomitant]
  11. FISH OIL [Concomitant]
  12. DIOVAN [Concomitant]
  13. XALATAN [Concomitant]
  14. PNEUMOVAX 23 [Concomitant]
  15. NYSTATIN MOUTHWASH [Concomitant]
     Dates: start: 20070224, end: 20070224
  16. MAALOX [Concomitant]
     Dates: start: 20070224, end: 20070224
  17. LIDOCAINE [Concomitant]
     Dates: start: 20070224, end: 20070224

REACTIONS (4)
  - HEADACHE [None]
  - INFLUENZA LIKE ILLNESS [None]
  - MYALGIA [None]
  - PYREXIA [None]
